FAERS Safety Report 20853947 (Version 1)
Quarter: 2022Q2

REPORT INFORMATION
  Report Type: Spontaneous
  Country: US (occurrence: US)
  Receive Date: 20220520
  Receipt Date: 20220520
  Transmission Date: 20220721
  Serious: Yes (Other)
  Sender: FDA-Public Use
  Company Number: US-drreddys-LIT/USA/22/0150175

PATIENT
  Sex: Male

DRUGS (3)
  1. TOPOTECAN HYDROCHLORIDE [Suspect]
     Active Substance: TOPOTECAN HYDROCHLORIDE
     Indication: Pineal parenchymal neoplasm malignant
     Route: 037
  2. TOPOTECAN HYDROCHLORIDE [Suspect]
     Active Substance: TOPOTECAN HYDROCHLORIDE
     Dosage: IN COMBINATION WITH TEMOZOLOMIDE
     Route: 037
  3. TEMOZOLOMIDE [Suspect]
     Active Substance: TEMOZOLOMIDE
     Indication: Pineal parenchymal neoplasm malignant

REACTIONS (2)
  - Disease progression [Unknown]
  - Drug ineffective [Unknown]
